FAERS Safety Report 10248240 (Version 1)
Quarter: 2014Q2

REPORT INFORMATION
  Report Type: Spontaneous
  Country: US (occurrence: AU)
  Receive Date: 20140620
  Receipt Date: 20140620
  Transmission Date: 20141212
  Serious: Yes (Other)
  Sender: FDA-Public Use
  Company Number: 2014SP003351

PATIENT
  Age: 32 Year
  Sex: Female

DRUGS (2)
  1. CISPLATIN [Suspect]
     Indication: NON-SMALL CELL LUNG CANCER STAGE IIIB
  2. ETOPOSIDE [Suspect]
     Indication: NON-SMALL CELL LUNG CANCER STAGE IIIB

REACTIONS (2)
  - Disease recurrence [Unknown]
  - Non-small cell lung cancer stage IIIB [Unknown]
